FAERS Safety Report 6572039-1 (Version None)
Quarter: 2010Q1

REPORT INFORMATION
  Report Type: 
  Country: None (occurrence: None)
  Receive Date: 20100205
  Receipt Date: 20100129
  Transmission Date: 20100710
  Serious: No
  Sender: FDA-Public Use
  Company Number: US-B.I. PHARMACEUTICALS,INC./RIDGEFIELD-2010-BP-01131BP

PATIENT
  Age: 62 Year
  Sex: Male

DRUGS (3)
  1. FLOMAX [Suspect]
     Indication: URINARY TRACT DISORDER
     Dosage: 0.4 MG
     Route: 048
     Dates: start: 20100101
  2. BACLOFEN [Concomitant]
     Indication: NEUROMYOPATHY
  3. HYDROCODONE [Concomitant]
     Indication: PAIN

REACTIONS (2)
  - RESIDUAL URINE [None]
  - URINE FLOW DECREASED [None]
